FAERS Safety Report 23856952 (Version 2)
Quarter: 2024Q3

REPORT INFORMATION
  Report Type: Other
  Country: ES (occurrence: ES)
  Receive Date: 20240515
  Receipt Date: 20240717
  Transmission Date: 20241016
  Serious: Yes (Life-Threatening, Hospitalization, Other)
  Sender: ASTELLAS
  Company Number: None

PATIENT
  Age: 2 Year
  Sex: Female

DRUGS (2)
  1. AMPHOTERICIN B [Suspect]
     Active Substance: AMPHOTERICIN B
     Indication: Septic shock
     Dosage: 50 MG, TOTAL DOSE (50 MG, ONCE)
     Route: 042
     Dates: start: 20240411, end: 20240411
  2. AMPHOTERICIN B [Suspect]
     Active Substance: AMPHOTERICIN B
     Indication: Prophylaxis
     Dosage: 2.6 ML, TOTAL DOSE (2.6 ML, ONCE)
     Route: 042
     Dates: start: 20240411, end: 20240411

REACTIONS (7)
  - Respiratory depression [Recovered/Resolved]
  - Vomiting [Recovered/Resolved]
  - Cough [Recovered/Resolved]
  - Rash [Recovered/Resolved]
  - Anaphylactic reaction [Recovered/Resolved]
  - Hypersensitivity [Recovered/Resolved]
  - Prolonged expiration [Recovered/Resolved]

NARRATIVE: CASE EVENT DATE: 20240411
